FAERS Safety Report 13981203 (Version 2)
Quarter: 2017Q3

REPORT INFORMATION
  Report Type: Spontaneous
  Country: JP (occurrence: JP)
  Receive Date: 20170918
  Receipt Date: 20170922
  Transmission Date: 20171128
  Serious: Yes (Other)
  Sender: FDA-Public Use
  Company Number: JP-STRIDES ARCOLAB LIMITED-2017SP012746

PATIENT

DRUGS (5)
  1. PREDNISOLONE. [Concomitant]
     Active Substance: PREDNISOLONE
     Indication: SYSTEMIC LUPUS ERYTHEMATOSUS
     Dosage: 5 MG, UNKNOWN
     Route: 065
  2. VONOPRAZAN [Concomitant]
     Active Substance: VONOPRAZAN
     Indication: HELICOBACTER INFECTION
     Dosage: 40 MG, UNKNOWN
     Route: 065
     Dates: start: 201507, end: 2015
  3. METRONIDAZOLE. [Suspect]
     Active Substance: METRONIDAZOLE
     Indication: HELICOBACTER INFECTION
     Dosage: 500 MG, UNKNOWN
     Route: 065
     Dates: start: 201507, end: 2015
  4. AMOXICILLIN. [Suspect]
     Active Substance: AMOXICILLIN
     Indication: HELICOBACTER INFECTION
     Dosage: 1500 MG, UNKNOWN
     Route: 065
     Dates: start: 201507, end: 2015
  5. PREDNISOLONE. [Concomitant]
     Active Substance: PREDNISOLONE
     Indication: ENTEROCOLITIS HAEMORRHAGIC
     Dosage: 5 MG, UNKNOWN
     Route: 048

REACTIONS (5)
  - Enterocolitis haemorrhagic [Unknown]
  - Off label use [Unknown]
  - Klebsiella infection [Unknown]
  - Haematochezia [Recovered/Resolved]
  - Abdominal pain [Recovered/Resolved]

NARRATIVE: CASE EVENT DATE: 2015
